FAERS Safety Report 7680217-3 (Version None)
Quarter: 2011Q3

REPORT INFORMATION
  Report Type: 
  Country: None (occurrence: None)
  Receive Date: 20110812
  Receipt Date: 20110811
  Transmission Date: 20111222
  Serious: Yes (Other)
  Sender: FDA-Public Use
  Company Number: JP-PFIZER INC-2011156271

PATIENT
  Age: 56 Year
  Sex: Male

DRUGS (15)
  1. VARENICLINE TARTRATE [Suspect]
     Dosage: 1MG, DAILY
     Route: 048
     Dates: start: 20110423, end: 20110510
  2. CLONAZEPAM [Concomitant]
     Indication: EPILEPSY
     Dosage: 5MG DAILY TO 5MG TWICE DAILY
     Route: 048
  3. MUCOSTA [Concomitant]
     Dosage: 200MG DAILY TO 200MG TWICE DAILY
     Route: 048
  4. HALCION [Concomitant]
     Indication: INSOMNIA
     Dosage: 0.25MG DAILY AS NEEDED
     Route: 048
  5. GABAPENTIN [Concomitant]
     Indication: EPILEPSY
     Dosage: 1200MG DAILY TO 1200MG THREE TIMES DAILY
     Route: 048
  6. LOXONIN [Concomitant]
     Dosage: 120MG TO 120 TWICE DAILY
     Route: 048
  7. ACETAMINOPHEN [Concomitant]
     Dosage: 400MG DAILY TO 800MG TWICE DAILY
     Route: 048
  8. VARENICLINE TARTRATE [Suspect]
     Indication: SMOKING CESSATION THERAPY
     Dosage: 0.5 MG, DAILY
     Route: 048
     Dates: start: 20110419, end: 20110422
  9. FAMOTIDINE [Concomitant]
     Dosage: 40MG DAILY TO 40MG TWICE DAILY
     Route: 048
  10. TANNALBIN [Concomitant]
     Dosage: 3G TO 3G THREE TIMES DAILY
  11. DIAZEPAM [Concomitant]
     Indication: INSOMNIA
     Dosage: 16MG DAILY TO 6MG, THREE TIMES DAILY
     Route: 048
  12. RISUMIC [Concomitant]
     Dosage: 20MG DAILY TO 20MG TWICE DAILY
     Route: 048
  13. TEGRETOL [Concomitant]
     Indication: EPILEPSY
     Dosage: 800MG DAILY TO 800MG TWICE DAILY
     Route: 048
  14. TS-1 [Concomitant]
     Dosage: 40MG DAILY TO 120MG TWICE DAILY
     Route: 048
  15. PHENYTOIN SODIUM CAP [Concomitant]
     Indication: EPILEPSY
     Dosage: 12MG DAILY TO 150 TWICE DAILY
     Route: 048

REACTIONS (3)
  - INCORRECT DOSE ADMINISTERED [None]
  - LOSS OF CONSCIOUSNESS [None]
  - FALL [None]
